FAERS Safety Report 17960469 (Version 2)
Quarter: 2024Q3

REPORT INFORMATION
  Report Type: Spontaneous
  Country: BE (occurrence: BE)
  Receive Date: 20200630
  Receipt Date: 20240812
  Transmission Date: 20241017
  Serious: Yes (Death, Life-Threatening, Hospitalization, Other)
  Sender: MYLAN
  Company Number: BE-VIGILIT-214966

PATIENT
  Age: 28 Year
  Sex: Male

DRUGS (3)
  1. TRAMADOL [Suspect]
     Active Substance: TRAMADOL\TRAMADOL HYDROCHLORIDE
     Indication: Abdominal pain
     Dosage: UNK
     Route: 065
  2. DEXTROSE [Concomitant]
     Active Substance: DEXTROSE\DEXTROSE MONOHYDRATE
     Indication: Hypoglycaemia
     Dosage: UNK
     Route: 065
  3. SODIUM BICARBONATE [Concomitant]
     Active Substance: SODIUM BICARBONATE
     Indication: Hypoglycaemia
     Dosage: UNK
     Route: 065

REACTIONS (18)
  - Acidosis [Fatal]
  - Loss of consciousness [Fatal]
  - Multiple organ dysfunction syndrome [Fatal]
  - Acute kidney injury [Fatal]
  - Poisoning [Fatal]
  - Acute hepatic failure [Fatal]
  - Lung consolidation [Fatal]
  - Cardiac arrest [Fatal]
  - Hypoglycaemia [Fatal]
  - Metabolic acidosis [Not Recovered/Not Resolved]
  - Sinus tachycardia [Not Recovered/Not Resolved]
  - Coma scale abnormal [Not Recovered/Not Resolved]
  - Pulmonary oedema [Unknown]
  - Apnoea [Recovered/Resolved]
  - Gastrointestinal haemorrhage [Unknown]
  - Areflexia [Unknown]
  - Pupillary reflex impaired [Unknown]
  - Overdose [Unknown]
